FAERS Safety Report 10621950 (Version 1)
Quarter: 2014Q4

REPORT INFORMATION
  Report Type: Spontaneous
  Country: US (occurrence: None)
  Receive Date: 20141201
  Receipt Date: 20141201
  Transmission Date: 20150529
  Serious: Yes (Hospitalization)
  Sender: FDA-Public Use
  Company Number: None

PATIENT
  Age: 63 Year
  Sex: Female
  Weight: 113.4 kg

DRUGS (2)
  1. CYTARABINE. [Suspect]
     Active Substance: CYTARABINE
     Dates: start: 20141120
  2. DAUNORUBICIN [Suspect]
     Active Substance: DAUNORUBICIN
     Dates: start: 20141116

REACTIONS (4)
  - Septic shock [None]
  - Pulmonary oedema [None]
  - Acute kidney injury [None]
  - Respiratory distress [None]

NARRATIVE: CASE EVENT DATE: 20141121
